FAERS Safety Report 25337992 (Version 1)
Quarter: 2025Q2

REPORT INFORMATION
  Report Type: Spontaneous
  Country: US (occurrence: US)
  Receive Date: 20250520
  Receipt Date: 20250520
  Transmission Date: 20250716
  Serious: No
  Sender: CARDINAL HEALTH
  Company Number: US-Cardinal Health 414-NPHS-AE-24-68

PATIENT
  Sex: Female

DRUGS (1)
  1. KIT FOR THE PREPARATION OF TECHNETIUM TC99M SESTAMIBI [Suspect]
     Active Substance: TECHNETIUM TC-99M SESTAMIBI
     Indication: Scan myocardial perfusion
     Route: 042
     Dates: start: 20241206, end: 20241206

REACTIONS (5)
  - Feeling hot [Unknown]
  - Anxiety [Unknown]
  - Paraesthesia oral [Unknown]
  - Pain in jaw [Unknown]
  - Chest pain [Unknown]

NARRATIVE: CASE EVENT DATE: 20241206
